FAERS Safety Report 23742407 (Version 2)
Quarter: 2024Q2

REPORT INFORMATION
  Report Type: Report from Study
  Country: US (occurrence: US)
  Receive Date: 20240415
  Receipt Date: 20240430
  Transmission Date: 20240716
  Serious: Yes (Hospitalization, Other)
  Sender: FDA-Public Use
  Company Number: US-UCBSA-2024017772

PATIENT
  Age: 73 Year
  Sex: Female

DRUGS (1)
  1. LEVETIRACETAM [Suspect]
     Active Substance: LEVETIRACETAM
     Indication: Seizure
     Dosage: 1500 MILLIGRAM, ONCE DAILY (QD), (750MG-2 TABS QHS)
     Route: 048
     Dates: start: 2009

REACTIONS (4)
  - Thrombosis [Recovered/Resolved]
  - Coronary arterial stent insertion [Unknown]
  - Dry skin [Unknown]
  - Cardiac monitoring [Unknown]

NARRATIVE: CASE EVENT DATE: 20231222
